FAERS Safety Report 12479575 (Version 3)
Quarter: 2016Q3

REPORT INFORMATION
  Report Type: Report from Study
  Country: US (occurrence: US)
  Receive Date: 20160620
  Receipt Date: 20160805
  Transmission Date: 20161109
  Serious: Yes (Hospitalization, Other)
  Sender: FDA-Public Use
  Company Number: US-AMGEN-USASL2016076250

PATIENT
  Age: 66 Year
  Sex: Female

DRUGS (1)
  1. ENBREL [Suspect]
     Active Substance: ETANERCEPT
     Indication: RHEUMATOID ARTHRITIS
     Dosage: UNK
     Route: 065
     Dates: start: 2015

REACTIONS (7)
  - Diarrhoea [Unknown]
  - Loss of consciousness [Unknown]
  - Sinusitis [Unknown]
  - Bronchitis [Unknown]
  - Amnesia [Unknown]
  - Headache [Unknown]
  - Tooth abscess [Unknown]
